FAERS Safety Report 20961824 (Version 1)
Quarter: 2022Q2

REPORT INFORMATION
  Report Type: Spontaneous
  Country: US (occurrence: US)
  Receive Date: 20220615
  Receipt Date: 20220615
  Transmission Date: 20220720
  Serious: No
  Sender: FDA-Public Use
  Company Number: US-drreddys-SPO/USA/22/0150913

PATIENT
  Age: 79 Year
  Sex: Female
  Weight: 71.9 kg

DRUGS (3)
  1. PREGABALIN [Suspect]
     Active Substance: PREGABALIN
     Indication: Pain
     Dosage: 150 MG IN THE MORNING WITH BREAKFAST, 50MG AT LUNCH AND 150MG AT NIGHT
     Dates: start: 20220319
  2. PREGABALIN [Suspect]
     Active Substance: PREGABALIN
     Dosage: 150 MG IN THE MORNING WITH BREAKFAST, 50MG AT LUNCH AND 150MG AT NIGHT
     Dates: start: 20220319
  3. SYNTHROID [Concomitant]
     Active Substance: LEVOTHYROXINE SODIUM
     Indication: Product used for unknown indication

REACTIONS (2)
  - Hyperphagia [Unknown]
  - Weight increased [Unknown]
